FAERS Safety Report 5083158-3 (Version None)
Quarter: 2006Q3

REPORT INFORMATION
  Report Type: 
  Country: None (occurrence: None)
  Receive Date: 20060724
  Receipt Date: 20031121
  Transmission Date: 20061208
  Serious: Yes (Hospitalization)
  Sender: FDA-Public Use
  Company Number: DRON00206001457

PATIENT
  Age: 35 Year
  Sex: Male

DRUGS (9)
  1. MARINOL [Suspect]
     Indication: MULTIPLE SCLEROSIS
     Dosage: BID ORAL DAILY
     Route: 048
     Dates: start: 20020111, end: 20030109
  2. CLONAZEPAM [Concomitant]
  3. MULTIVITAMIN [Concomitant]
  4. SELENIUM AND ZINC (SELENIUM AND ZINC) [Concomitant]
  5. VITAMIN E [Concomitant]
  6. VITAMIN B COMPLEX (VITAMIN B COMPLEX) [Concomitant]
  7. VITAMIN C (VITAMIN C) [Concomitant]
  8. VITAMIN D [Concomitant]
  9. ZINC (ZINC) [Concomitant]

REACTIONS (4)
  - FALL [None]
  - MULTIPLE SCLEROSIS RELAPSE [None]
  - MUSCULOSKELETAL STIFFNESS [None]
  - URINARY TRACT INFECTION [None]
